FAERS Safety Report 16777776 (Version 1)
Quarter: 2019Q3

REPORT INFORMATION
  Report Type: Spontaneous
  Country: US (occurrence: US)
  Receive Date: 20190905
  Receipt Date: 20190905
  Transmission Date: 20191005
  Serious: Yes (Hospitalization, Other)
  Sender: FDA-Public Use
  Company Number: US-ELI_LILLY_AND_COMPANY-US201908014520

PATIENT
  Sex: Female

DRUGS (5)
  1. HUMULIN R U-500 [Suspect]
     Active Substance: INSULIN HUMAN
     Indication: TYPE 2 DIABETES MELLITUS
     Dosage: 120 U, TID (AT 8 AM, 4 PM AND MIDNIGHT)
     Route: 065
     Dates: start: 2019
  2. PREDNISONE. [Suspect]
     Active Substance: PREDNISONE
     Indication: DYSPNOEA
     Dosage: UNK UNK, UNKNOWN
     Route: 048
     Dates: start: 201908
  3. PREDNISONE. [Suspect]
     Active Substance: PREDNISONE
     Dosage: UNK UNK, UNKNOWN
     Route: 042
     Dates: start: 201908
  4. TRULICITY [Suspect]
     Active Substance: DULAGLUTIDE
     Indication: TYPE 2 DIABETES MELLITUS
     Dosage: 1.5 MG, UNKNOWN
     Route: 065
  5. HUMULIN R U-500 [Suspect]
     Active Substance: INSULIN HUMAN
     Dosage: 300 U, SINGLE
     Route: 065
     Dates: start: 20190828

REACTIONS (9)
  - Hypomagnesaemia [Unknown]
  - Blood glucose increased [Unknown]
  - Hypoxia [Unknown]
  - Incorrect dose administered [Unknown]
  - Haemoptysis [Unknown]
  - Glycosylated haemoglobin increased [Unknown]
  - Product dose omission [Unknown]
  - Pneumonia [Unknown]
  - Dyspnoea [Unknown]

NARRATIVE: CASE EVENT DATE: 20190828
